FAERS Safety Report 11588475 (Version 4)
Quarter: 2016Q4

REPORT INFORMATION
  Report Type: Report from Study
  Country: None (occurrence: US)
  Receive Date: 20151002
  Receipt Date: 20161221
  Transmission Date: 20170206
  Serious: Yes (Hospitalization)
  Sender: FDA-Public Use
  Company Number: US-ABBVIE-15P-163-1450213-00

PATIENT
  Age: 64 Year
  Sex: Female
  Weight: 78 kg

DRUGS (27)
  1. DASABUVIR [Suspect]
     Active Substance: DASABUVIR
     Indication: HEPATITIS C
     Route: 048
     Dates: start: 20150729
  2. TACROLIMUS. [Concomitant]
     Active Substance: TACROLIMUS
     Dates: start: 20150908, end: 20150908
  3. TACROLIMUS. [Concomitant]
     Active Substance: TACROLIMUS
     Dates: start: 20150922
  4. TACROLIMUS. [Concomitant]
     Active Substance: TACROLIMUS
     Dosage: QAM
     Dates: start: 20151110, end: 20151117
  5. FOLIC ACID. [Concomitant]
     Active Substance: FOLIC ACID
     Indication: VITAMIN SUPPLEMENTATION
     Route: 048
     Dates: start: 2011
  6. PRAVACHOL [Concomitant]
     Active Substance: PRAVASTATIN SODIUM
     Indication: CORONARY ARTERY DISEASE
     Route: 048
     Dates: start: 2014, end: 20150728
  7. PROAIR HFA [Concomitant]
     Active Substance: ALBUTEROL SULFATE
     Indication: SEASONAL ALLERGY
     Route: 048
     Dates: start: 2014
  8. COREG [Concomitant]
     Active Substance: CARVEDILOL
     Indication: HYPERTENSION
     Route: 048
     Dates: start: 2011
  9. TACROLIMUS. [Concomitant]
     Active Substance: TACROLIMUS
     Dosage: QPM
     Dates: start: 20151021, end: 20151102
  10. TACROLIMUS. [Concomitant]
     Active Substance: TACROLIMUS
     Dates: start: 20151103, end: 20151109
  11. ASPIRIN. [Concomitant]
     Active Substance: ASPIRIN
     Indication: CORONARY ARTERY DISEASE
     Route: 048
     Dates: start: 2013
  12. FLUTICASONE NASAL [Concomitant]
     Active Substance: FLUTICASONE\FLUTICASONE PROPIONATE
     Indication: SEASONAL ALLERGY
     Route: 045
     Dates: start: 2014
  13. CALCIUM CITRATE-VITAMIN D3 [Concomitant]
     Indication: MINERAL SUPPLEMENTATION
     Route: 048
     Dates: start: 20150810, end: 20160601
  14. TACROLIMUS. [Concomitant]
     Active Substance: TACROLIMUS
     Dosage: QAM
     Dates: start: 20151021, end: 20151102
  15. LISINOPRIL. [Concomitant]
     Active Substance: LISINOPRIL
     Indication: HYPERTENSION
     Route: 048
     Dates: start: 2011, end: 20150728
  16. OMPREZOLE [Concomitant]
     Active Substance: OMEPRAZOLE
     Indication: GASTROOESOPHAGEAL REFLUX DISEASE
     Route: 048
     Dates: start: 2015
  17. TACROLIMUS. [Concomitant]
     Active Substance: TACROLIMUS
     Indication: IMMUNOSUPPRESSANT DRUG THERAPY
     Dosage: EVERY AM
     Dates: start: 20110909, end: 20150728
  18. TACROLIMUS. [Concomitant]
     Active Substance: TACROLIMUS
     Dosage: EVERY PM
     Dates: start: 20110909, end: 20150728
  19. TACROLIMUS. [Concomitant]
     Active Substance: TACROLIMUS
     Dates: start: 20150813, end: 20150813
  20. TACROLIMUS. [Concomitant]
     Active Substance: TACROLIMUS
     Route: 048
     Dates: start: 20151126
  21. TACROLIMUS. [Concomitant]
     Active Substance: TACROLIMUS
     Dosage: QAM
     Dates: start: 20151118, end: 20151125
  22. TACROLIMUS. [Concomitant]
     Active Substance: TACROLIMUS
     Dosage: QPM
     Dates: start: 20151118, end: 20151125
  23. BENADRYL [Concomitant]
     Active Substance: DIPHENHYDRAMINE HYDROCHLORIDE
     Indication: COUGH
     Route: 048
     Dates: start: 2014
  24. OMBITASVIR/PARITAPREVIR/RITONAVIR [Suspect]
     Active Substance: OMBITASVIR\PARITAPREVIR\RITONAVIR
     Indication: HEPATITIS C
     Dosage: 150/100/25 MG QD
     Route: 048
     Dates: start: 20150729
  25. TACROLIMUS. [Concomitant]
     Active Substance: TACROLIMUS
     Dosage: QPM
     Route: 048
     Dates: start: 20151110, end: 20151117
  26. CIPROFLAXCIN [Concomitant]
     Active Substance: CIPROFLOXACIN
     Indication: URINARY TRACT INFECTION
     Route: 048
     Dates: start: 20150804, end: 20150810
  27. CALCIUM CITRATE-VITAMIN D3 [Concomitant]
     Indication: VITAMIN SUPPLEMENTATION

REACTIONS (3)
  - Hyponatraemia [Recovered/Resolved]
  - Hyponatraemia [Recovered/Resolved]
  - Acute kidney injury [Recovered/Resolved]

NARRATIVE: CASE EVENT DATE: 20150811
